FAERS Safety Report 15764407 (Version 2)
Quarter: 2019Q1

REPORT INFORMATION
  Report Type: Report from Study
  Country: US (occurrence: US)
  Receive Date: 20181227
  Receipt Date: 20190118
  Transmission Date: 20190417
  Serious: No
  Sender: FDA-Public Use
  Company Number: PHEH2018US054715

PATIENT
  Sex: Male

DRUGS (1)
  1. ENTRESTO [Suspect]
     Active Substance: SACUBITRIL\VALSARTAN
     Indication: CHRONIC LEFT VENTRICULAR FAILURE
     Dosage: 50 MG (24MG SACUBITRIL/ 26MG VALSARTAN), UNK
     Route: 048
     Dates: start: 20180215

REACTIONS (1)
  - No adverse event [Unknown]
